FAERS Safety Report 9767404 (Version 1)
Quarter: 2013Q4

REPORT INFORMATION
  Report Type: Spontaneous
  Country: AE (occurrence: AE)
  Receive Date: 20131217
  Receipt Date: 20131217
  Transmission Date: 20140711
  Serious: Yes (Other)
  Sender: FDA-Public Use
  Company Number: AE-ASTELLAS-2013EU010908

PATIENT
  Sex: Male

DRUGS (3)
  1. XTANDI [Suspect]
     Dosage: 160 MG, UID/QD
     Route: 065
     Dates: start: 20130825
  2. XTANDI [Suspect]
     Dosage: UNK
     Route: 065
     Dates: start: 20131025, end: 20131118
  3. XTANDI [Suspect]
     Dosage: UNK
     Route: 065

REACTIONS (7)
  - Toxicity to various agents [Unknown]
  - Toxicity to various agents [Unknown]
  - Lung infection [Recovered/Resolved]
  - White blood cell count decreased [Unknown]
  - Haemoglobin decreased [Unknown]
  - Bone pain [Unknown]
  - Insomnia [Unknown]
